FAERS Safety Report 17458842 (Version 1)
Quarter: 2020Q1

REPORT INFORMATION
  Report Type: Spontaneous
  Country: US (occurrence: US)
  Receive Date: 20200225
  Receipt Date: 20200225
  Transmission Date: 20200409
  Serious: No
  Sender: FDA-Public Use
  Company Number: US-IGSA-SR10008516

PATIENT
  Age: 57 Year
  Sex: Female
  Weight: 64 kg

DRUGS (14)
  1. COMBIVENT [Concomitant]
     Active Substance: ALBUTEROL SULFATE\IPRATROPIUM BROMIDE
  2. ADVAIR HFA [Concomitant]
     Active Substance: FLUTICASONE PROPIONATE\SALMETEROL XINAFOATE
  3. FOLIC ACID. [Concomitant]
     Active Substance: FOLIC ACID
  4. MULTIPLE VITAMINS [Concomitant]
     Active Substance: VITAMINS
  5. POTASSIUM [Concomitant]
     Active Substance: POTASSIUM
  6. CALCIUM [Concomitant]
     Active Substance: CALCIUM
  7. SPIRIVA [Concomitant]
     Active Substance: TIOTROPIUM BROMIDE MONOHYDRATE
  8. MILK THISTLE PLUS                  /08512201/ [Concomitant]
  9. PROLASTIN-C LIQUID [Suspect]
     Active Substance: .ALPHA.1-PROTEINASE INHIBITOR HUMAN
     Dosage: UNK
     Route: 042
     Dates: start: 20190423
  10. DIOVAN [Concomitant]
     Active Substance: VALSARTAN
  11. LORATADINE. [Concomitant]
     Active Substance: LORATADINE
  12. COENZYME Q10 [Concomitant]
     Active Substance: UBIDECARENONE
  13. VITAMIN D                          /00107901/ [Concomitant]
     Active Substance: ERGOCALCIFEROL
  14. PROLASTIN-C LIQUID [Suspect]
     Active Substance: .ALPHA.1-PROTEINASE INHIBITOR HUMAN
     Indication: ALPHA-1 ANTI-TRYPSIN DEFICIENCY
     Dosage: 3818 MG, Q.WK.
     Route: 042
     Dates: start: 201905

REACTIONS (4)
  - Irritability [Not Recovered/Not Resolved]
  - Pruritus [Not Recovered/Not Resolved]
  - Somnolence [Not Recovered/Not Resolved]
  - Fatigue [Not Recovered/Not Resolved]

NARRATIVE: CASE EVENT DATE: 201905
